FAERS Safety Report 9312879 (Version 1)
Quarter: 2013Q2

REPORT INFORMATION
  Report Type: Spontaneous
  Country: AU (occurrence: AU)
  Receive Date: 20130528
  Receipt Date: 20130528
  Transmission Date: 20140414
  Serious: Yes (Hospitalization, Other)
  Sender: FDA-Public Use
  Company Number: AU-PFIZER INC-2013107282

PATIENT
  Age: 56 Year
  Sex: Female

DRUGS (7)
  1. PRISTIQ [Suspect]
     Indication: MAJOR DEPRESSION
     Dosage: 50 MG, 1X/DAY
     Route: 048
     Dates: start: 201203
  2. PRISTIQ [Suspect]
     Dosage: 100 MG, UNK
     Route: 048
     Dates: start: 201212
  3. PRISTIQ [Suspect]
     Dosage: 200 MG, 1X/DAY
     Route: 048
     Dates: start: 20121203
  4. PRISTIQ [Suspect]
     Dosage: 150 MG, UNK
     Route: 048
  5. PRISTIQ [Suspect]
     Dosage: 200 MG, 1X/DAY
     Route: 048
     Dates: end: 20130315
  6. PRISTIQ [Suspect]
     Dosage: 50 MG, 1X/DAY
     Route: 048
     Dates: start: 20130315, end: 2013
  7. MIRTAZAPINE [Concomitant]
     Dosage: 15 MG, 1X/DAY (AT NIGHT)
     Route: 048
     Dates: start: 20130315, end: 20130322

REACTIONS (5)
  - Grand mal convulsion [Recovered/Resolved]
  - Disorientation [Recovered/Resolved]
  - Feeling abnormal [Unknown]
  - Hyperhidrosis [Unknown]
  - Drug withdrawal syndrome [Unknown]
